FAERS Safety Report 7215136-X (Version None)
Quarter: 2011Q1

REPORT INFORMATION
  Report Type: 
  Country: None (occurrence: None)
  Receive Date: 20110107
  Receipt Date: 20100908
  Transmission Date: 20110831
  Serious: No
  Sender: FDA-Public Use
  Company Number: A0880296A

PATIENT
  Age: 37 Year
  Sex: Female

DRUGS (3)
  1. LOVAZA [Suspect]
     Dosage: 1CAP TWICE PER DAY
     Route: 048
     Dates: start: 20100819
  2. MODUCARE [Suspect]
     Indication: HIV INFECTION
     Route: 065
  3. NO CONCURRENT MEDICATION [Concomitant]

REACTIONS (4)
  - DIZZINESS [None]
  - MALAISE [None]
  - PALPITATIONS [None]
  - HYPERSENSITIVITY [None]
